FAERS Safety Report 5161672-X (Version None)
Quarter: 2006Q4

REPORT INFORMATION
  Report Type: 
  Country: None (occurrence: None)
  Receive Date: 20061130
  Receipt Date: 20060427
  Transmission Date: 20070319
  Serious: No
  Sender: FDA-Public Use
  Company Number: US-BRISTOL-MYERS SQUIBB COMPANY-13358734

PATIENT
  Age: 7 Decade
  Sex: Female
  Weight: 58 kg

DRUGS (2)
  1. GLUCOPHAGE XR [Suspect]
     Indication: DIABETES MELLITUS
     Dates: start: 20051101
  2. NORVASC [Concomitant]

REACTIONS (1)
  - WEIGHT DECREASED [None]
